FAERS Safety Report 8294399-6 (Version None)
Quarter: 2012Q2

REPORT INFORMATION
  Report Type: 
  Country: None (occurrence: None)
  Receive Date: 20120418
  Receipt Date: 20120416
  Transmission Date: 20120825
  Serious: Yes (Other)
  Sender: FDA-Public Use
  Company Number: US-PFIZER INC-2010049894

PATIENT
  Sex: Male

DRUGS (2)
  1. DILANTIN-125 [Suspect]
     Indication: CONVULSION
     Dosage: 50 MG, 1X/DAY
     Route: 048
  2. DILANTIN-125 [Suspect]
     Dosage: 100 MG, 2X/DAY
     Route: 048

REACTIONS (7)
  - EPILEPSY [None]
  - CEREBROVASCULAR ACCIDENT [None]
  - AMNESIA [None]
  - CONVULSION [None]
  - CONCUSSION [None]
  - HEAD INJURY [None]
  - FALL [None]
